FAERS Safety Report 12423607 (Version 1)
Quarter: 2016Q2

REPORT INFORMATION
  Report Type: Spontaneous
  Country: FR (occurrence: FR)
  Receive Date: 20160601
  Receipt Date: 20160601
  Transmission Date: 20160815
  Serious: Yes (Death, Hospitalization, Other)
  Sender: FDA-Public Use
  Company Number: FR-CELGENEUS-FRA-2014123018

PATIENT

DRUGS (2)
  1. REVLIMID [Suspect]
     Active Substance: LENALIDOMIDE
     Indication: PLASMA CELL MYELOMA
     Dosage: 25 MILLIGRAM
     Route: 048
  2. DEXAMETHASONE. [Concomitant]
     Active Substance: DEXAMETHASONE
     Indication: PLASMA CELL MYELOMA
     Route: 065

REACTIONS (8)
  - Adverse event [Unknown]
  - Febrile neutropenia [Unknown]
  - Neutropenia [Unknown]
  - Drug intolerance [Unknown]
  - Death [Fatal]
  - Infection [Unknown]
  - Plasma cell myeloma [Unknown]
  - Haematotoxicity [Unknown]
